FAERS Safety Report 8242360-X (Version None)
Quarter: 2012Q1

REPORT INFORMATION
  Report Type: 
  Country: None (occurrence: None)
  Receive Date: 20120329
  Receipt Date: 20120316
  Transmission Date: 20120608
  Serious: Yes (Death, Hospitalization)
  Sender: FDA-Public Use
  Company Number: CA-CELGENEUS-028-C5013-12011266

PATIENT
  Sex: Male
  Weight: 57.2 kg

DRUGS (73)
  1. LENALIDOMIDE [Suspect]
     Indication: MULTIPLE MYELOMA
     Dosage: 25 MILLIGRAM
     Route: 048
     Dates: start: 20101104
  2. PRILOSEC [Concomitant]
  3. LASIX [Concomitant]
     Indication: OEDEMA
     Dosage: 20 MILLIGRAM
     Route: 041
     Dates: start: 20120114, end: 20120114
  4. SODIUM CHLORIDE [Concomitant]
     Dosage: 500 MILLILITER
     Route: 040
     Dates: start: 20120113, end: 20120117
  5. SODIUM CHLORIDE [Concomitant]
     Dosage: 180 CC
     Route: 040
     Dates: start: 20120117, end: 20120118
  6. SCOPOLAMINE [Concomitant]
     Dosage: .6 MILLIGRAM
     Route: 065
     Dates: start: 20120119
  7. ALENDRONATE SODIUM [Concomitant]
     Indication: OSTEOPOROSIS
     Dosage: 70 MILLIGRAM
     Route: 048
  8. NIASPAN [Concomitant]
     Dosage: 500 MILLIGRAM
     Route: 048
     Dates: start: 20050101, end: 20120110
  9. HEPARIN [Concomitant]
     Dosage: 5000
     Route: 058
     Dates: start: 20120113, end: 20120114
  10. CRESTOR [Concomitant]
     Dosage: 2.5 MILLIGRAM
     Route: 048
     Dates: start: 20120112, end: 20120118
  11. TIMOLOL MALEATE [Concomitant]
     Indication: GLAUCOMA
     Dosage: 1 DROPS
     Route: 041
     Dates: start: 20120112, end: 20120118
  12. AMLODIPINE [Concomitant]
     Indication: HYPERTENSION
     Dosage: 5 MILLIGRAM
     Route: 048
     Dates: start: 20050101, end: 20120110
  13. HYDROMORPHONE HCL [Concomitant]
     Indication: PAIN
     Dosage: 6 MILLIGRAM
     Route: 048
     Dates: start: 20110224, end: 20120121
  14. TYLENOL [Concomitant]
     Dosage: 500MG, 1-2
     Route: 048
     Dates: end: 20120118
  15. SODIUM CHLORIDE [Concomitant]
     Dosage: 50 MILLILITER
     Route: 040
     Dates: start: 20120112, end: 20120113
  16. EURO-D [Concomitant]
     Indication: OSTEOPOROSIS
  17. SODIUM CHLORIDE [Concomitant]
     Indication: HYPOTENSION
     Dosage: 1 LITERS
     Route: 040
     Dates: start: 20120117, end: 20120117
  18. LYRICA [Concomitant]
     Dosage: 25 MILLIGRAM
     Route: 048
     Dates: end: 20111021
  19. PNEUMOVAX 23 [Concomitant]
     Indication: INFECTION PROPHYLAXIS
     Dosage: .5 MILLILITER
     Route: 065
     Dates: start: 20101104, end: 20101104
  20. SYNTHROID [Concomitant]
     Dosage: .075 MILLIGRAM
     Route: 048
     Dates: start: 20110624, end: 20110720
  21. SYNTHROID [Concomitant]
     Dosage: .1 MILLIGRAM
     Route: 048
     Dates: start: 20110721, end: 20120118
  22. MAGNESIUM SULFATE [Concomitant]
     Route: 041
     Dates: start: 20120101
  23. ANUSOL [Concomitant]
     Route: 065
     Dates: start: 20120115, end: 20120118
  24. LEVOPHED [Concomitant]
     Indication: HYPOTENSION
     Dosage: 4 MILLIGRAM
     Route: 041
     Dates: start: 20120112, end: 20120114
  25. LACTULOSE [Concomitant]
     Indication: CONSTIPATION
     Route: 065
  26. LOVENOX [Concomitant]
     Dosage: 40
     Route: 058
     Dates: start: 20120114, end: 20120118
  27. VENTOLIN [Concomitant]
     Dosage: 4
     Route: 055
     Dates: start: 20120112
  28. PEPCID [Concomitant]
     Indication: DYSPEPSIA
     Dosage: 20 MILLIGRAM
     Route: 041
     Dates: start: 20120112, end: 20120114
  29. SOLU-CORTEF [Concomitant]
     Indication: INFECTION
     Route: 041
  30. NORMAL SALINE W/ KCL [Concomitant]
     Dosage: 80 CC
     Route: 040
     Dates: start: 20120113, end: 20120115
  31. DEXAMETHASONE [Suspect]
     Indication: MULTIPLE MYELOMA
     Dosage: 20 MILLIGRAM
     Route: 065
     Dates: start: 20101104
  32. DEXAMETHASONE [Suspect]
     Dosage: 12 MILLIGRAM
     Route: 065
     Dates: start: 20111222, end: 20120110
  33. COLACE [Concomitant]
     Indication: CONSTIPATION
     Dosage: 100-200MG
     Route: 048
     Dates: start: 20100526, end: 20120110
  34. MUCOMYST [Concomitant]
     Indication: PREMEDICATION
     Dosage: 600 MILLIGRAM
     Route: 048
     Dates: start: 20120114, end: 20120115
  35. BENADRYL [Concomitant]
     Dosage: 50 MILLIGRAM
     Route: 041
     Dates: start: 20120111, end: 20120111
  36. FLU VACCINE [Concomitant]
     Dosage: .5 MILLILITER
     Route: 065
     Dates: start: 20101104, end: 20101104
  37. LENALIDOMIDE [Suspect]
     Dosage: 25 MILLIGRAM
     Route: 048
     Dates: start: 20111222, end: 20120110
  38. ASPIRIN [Concomitant]
     Indication: HYPERTENSION
     Dosage: 80 MILLIGRAM
     Route: 048
     Dates: start: 20050101, end: 20120118
  39. PRAVASTATIN [Concomitant]
     Indication: HYPERTENSION
     Dosage: 40 MILLIGRAM
     Route: 048
     Dates: start: 20050101
  40. PRAVASTATIN [Concomitant]
  41. DILAUDID [Concomitant]
     Indication: PAIN
     Dosage: 1 MILLIGRAM
     Route: 048
     Dates: start: 20110901, end: 20120118
  42. POTASSIUM PHOSPHATES [Concomitant]
     Route: 041
     Dates: start: 20120114, end: 20120114
  43. SODIUM CHLORIDE [Concomitant]
     Indication: HYPOTENSION
     Dosage: 120 MILLILITER
     Route: 040
     Dates: start: 20120110, end: 20120111
  44. ZOVIRAX [Concomitant]
     Route: 065
     Dates: start: 20101228, end: 20110112
  45. ALENDRONATE SODIUM [Concomitant]
     Route: 048
  46. VERSED [Concomitant]
     Dosage: 25 MILLIGRAM
     Route: 065
     Dates: start: 20120121
  47. SOLU-CORTEF [Concomitant]
     Dosage: 50 MILLIGRAM
     Route: 041
     Dates: start: 20120113, end: 20120118
  48. PANTOPRAZOLE SODIUM [Concomitant]
     Dosage: 40 MILLIGRAM
     Route: 048
     Dates: start: 20120111, end: 20120118
  49. SYNTHROID [Concomitant]
     Indication: HYPOTHYROIDISM
     Dosage: .5 MILLIGRAM
     Route: 048
     Dates: start: 20110527, end: 20110623
  50. DILAUDID [Concomitant]
     Dosage: 10 MILLIGRAM
     Route: 040
     Dates: start: 20120121
  51. TRAVOPROST AND TIMOLOL [Concomitant]
     Indication: GLAUCOMA
     Route: 047
     Dates: start: 20070101, end: 20120110
  52. ENSURE [Concomitant]
     Route: 065
     Dates: start: 20110201
  53. SODIUM CHLORIDE [Concomitant]
     Dosage: 500 MILLILITER
     Route: 040
     Dates: start: 20120117, end: 20120117
  54. DILAUDID [Concomitant]
     Dosage: .5 MILLIGRAM
     Route: 058
     Dates: start: 20120119, end: 20120121
  55. CALCIUM GLUCONATE [Concomitant]
     Dosage: 500 MILLIGRAM
     Route: 048
     Dates: start: 20120112, end: 20120113
  56. GRAVOL TAB [Concomitant]
     Indication: NAUSEA
     Dosage: 50 MILLIGRAM
     Route: 041
     Dates: start: 20120110, end: 20120118
  57. CALCIUM CARBONATE [Concomitant]
     Route: 065
     Dates: start: 20120101
  58. SODIUM CHLORIDE [Concomitant]
     Indication: FLUID REPLACEMENT
     Dosage: 40 CC
     Route: 040
     Dates: start: 20120111, end: 20120112
  59. INHALER [Concomitant]
     Route: 055
  60. EURO-D [Concomitant]
     Dosage: 400 U
     Route: 048
     Dates: start: 20080101, end: 20120118
  61. FLEXERIL [Concomitant]
     Route: 065
  62. SENOKOT [Concomitant]
     Indication: CONSTIPATION
     Route: 048
     Dates: end: 20120110
  63. ATROVENT [Concomitant]
     Dosage: 4
     Route: 055
     Dates: start: 20120112
  64. HEPARIN [Concomitant]
     Indication: DYSPEPSIA
     Dosage: 5000
     Route: 058
     Dates: start: 20120112, end: 20120113
  65. POTASSIUM CHLORIDE [Concomitant]
     Dosage: 20 MILLIEQUIVALENTS
     Route: 048
     Dates: start: 20120114, end: 20120116
  66. PRILOSEC [Concomitant]
     Dosage: 20 MILLIGRAM
     Route: 048
     Dates: start: 20050101, end: 20120110
  67. POTASSIUM CHLORIDE [Concomitant]
     Dosage: 20 MICROGRAM
     Route: 048
     Dates: start: 20120113, end: 20120113
  68. TYLENOL [Concomitant]
     Dosage: 650 MILLIGRAM
     Route: 048
     Dates: start: 20120112, end: 20120118
  69. LASIX [Concomitant]
     Dosage: 20 MILLIGRAM
     Route: 048
     Dates: start: 20120114, end: 20120117
  70. PROCHLORPERAZINE [Concomitant]
     Indication: NAUSEA
     Route: 065
  71. SERAX [Concomitant]
     Indication: INSOMNIA
     Dosage: 15 MILLIGRAM
     Route: 048
     Dates: start: 20120111, end: 20120118
  72. XALATAN [Concomitant]
     Indication: GLAUCOMA
     Dosage: 1 DROPS
     Route: 058
     Dates: start: 20120112, end: 20120118
  73. VITAMIN D [Concomitant]
     Indication: MULTIPLE FRACTURES
     Dosage: 20
     Route: 065
     Dates: start: 20101007, end: 20101013

REACTIONS (2)
  - FEBRILE NEUTROPENIA [None]
  - PNEUMONIA [None]
